FAERS Safety Report 5538350-8 (Version None)
Quarter: 2007Q4

REPORT INFORMATION
  Report Type: 
  Country: None (occurrence: None)
  Receive Date: 20071205
  Receipt Date: 20071203
  Transmission Date: 20080405
  Serious: No
  Sender: FDA-Public Use
  Company Number: C-07-0025

PATIENT
  Age: 82 Year
  Sex: Male
  Weight: 56.6996 kg

DRUGS (18)
  1. GENERLAC SOLUTION 10G/15ML (PRODUCT CODE 8038) [Suspect]
     Indication: CONSTIPATION
     Dosage: 3-4 TBSP/DAY ORALLY
     Route: 048
     Dates: start: 20070801
  2. ALBUTEROL SULFATE [Concomitant]
  3. ATROVENT [Concomitant]
  4. QVAR 40 [Concomitant]
  5. ASPIRIN [Concomitant]
  6. LANOXIN [Concomitant]
  7. LASIX [Concomitant]
  8. KLOR-CON [Concomitant]
  9. CARTIA XT [Concomitant]
  10. DOCUSATE [Concomitant]
  11. NATURAL LAXATIVE [Concomitant]
  12. SENNA [Concomitant]
  13. AVODART [Concomitant]
  14. RSIPERDAL [Concomitant]
  15. PREDNISONE [Concomitant]
  16. FLOMAX [Concomitant]
  17. GAS-EX [Concomitant]
  18. MULTIVITAMINS (DOSAGE AND DATES UNKNOWN) [Concomitant]

REACTIONS (2)
  - DRUG INEFFECTIVE [None]
  - DRUG INTERACTION [None]
